FAERS Safety Report 6782299-X (Version None)
Quarter: 2010Q2

REPORT INFORMATION
  Report Type: 
  Country: None (occurrence: None)
  Receive Date: 20100621
  Receipt Date: 20100615
  Transmission Date: 20101027
  Serious: Yes (Other)
  Sender: FDA-Public Use
  Company Number: US-BRISTOL-MYERS SQUIBB COMPANY-15085954

PATIENT
  Age: 52 Year
  Sex: Male
  Weight: 106 kg

DRUGS (8)
  1. ATAZANAVIR [Suspect]
     Indication: HIV INFECTION
     Dosage: LAST DOSE ON 25-APR-2010.
     Route: 048
     Dates: start: 20100330
  2. RITONAVIR [Suspect]
     Indication: HIV INFECTION
     Dosage: LAST DOSE ON 25APR2010.
     Route: 048
     Dates: start: 20100330
  3. TRUVADA [Suspect]
     Indication: HIV INFECTION
     Dosage: LAST DOSE ON 25-APR-2010.
     Route: 048
     Dates: start: 20100330
  4. FEXOFENADINE HCL [Concomitant]
     Route: 048
     Dates: start: 20070806
  5. FLUOCINONIDE [Concomitant]
     Indication: ECZEMA
     Dosage: 1 DF-0.05% UINTS NOT SPECIFIED.
     Dates: start: 20070904
  6. KETOCONAZOLE [Concomitant]
     Indication: ECZEMA
     Dosage: 1 DF-2% CREAM UNITS NOT SPECIFIED.
     Dates: start: 20100224
  7. BACTRIM DS [Concomitant]
     Indication: PROPHYLAXIS
     Route: 048
     Dates: start: 20100224, end: 20100420
  8. ALEVE (CAPLET) [Concomitant]
     Indication: ARTHRALGIA
     Dates: start: 20090807

REACTIONS (2)
  - BLOOD ALKALINE PHOSPHATASE INCREASED [None]
  - HEPATIC STEATOSIS [None]
